FAERS Safety Report 9293075 (Version 1)
Quarter: 2013Q2

REPORT INFORMATION
  Report Type: Spontaneous
  Country: US (occurrence: None)
  Receive Date: 20130515
  Receipt Date: 20130515
  Transmission Date: 20140414
  Serious: No
  Sender: FDA-Public Use
  Company Number: None

PATIENT
  Age: 65 Year
  Sex: Male
  Weight: 88.9 kg

DRUGS (1)
  1. PACLITAXEL (TAXOL) [Suspect]

REACTIONS (2)
  - Dyspnoea [None]
  - Back pain [None]
